FAERS Safety Report 9167953 (Version 3)
Quarter: 2013Q2

REPORT INFORMATION
  Report Type: Spontaneous
  Country: US (occurrence: US)
  Receive Date: 20130318
  Receipt Date: 20130529
  Transmission Date: 20140414
  Serious: No
  Sender: FDA-Public Use
  Company Number: US-009507513-1303USA006895

PATIENT
  Age: 22 Year
  Sex: Female
  Weight: 79.37 kg

DRUGS (1)
  1. NEXPLANON [Suspect]
     Indication: CONTRACEPTION
     Dosage: 1 DF, UNK
     Route: 059
     Dates: start: 20130304, end: 20130313

REACTIONS (13)
  - Skin reaction [Not Recovered/Not Resolved]
  - Erythema [Not Recovered/Not Resolved]
  - Pruritus [Unknown]
  - Pain in extremity [Not Recovered/Not Resolved]
  - Wound [Not Recovered/Not Resolved]
  - Contusion [Not Recovered/Not Resolved]
  - Hypoaesthesia [Not Recovered/Not Resolved]
  - Adverse reaction [Unknown]
  - Skin warm [Not Recovered/Not Resolved]
  - Infection [Not Recovered/Not Resolved]
  - Irritability [Not Recovered/Not Resolved]
  - Dermatitis allergic [Unknown]
  - Rash [Unknown]
